FAERS Safety Report 7854209-5 (Version None)
Quarter: 2011Q4

REPORT INFORMATION
  Report Type: 
  Country: None (occurrence: None)
  Receive Date: 20111026
  Receipt Date: 20111019
  Transmission Date: 20120403
  Serious: Yes (Other)
  Sender: FDA-Public Use
  Company Number: US-AMGEN-USASP2011037696

PATIENT
  Age: 18 Year
  Sex: Male

DRUGS (4)
  1. PROMACTA [Concomitant]
  2. NPLATE [Suspect]
     Indication: IDIOPATHIC THROMBOCYTOPENIC PURPURA
     Dosage: 7 MUG/KG, UNK
     Dates: start: 20101201, end: 20110616
  3. ADVAIR DISKUS 100/50 [Concomitant]
  4. ALBUTEROL [Concomitant]
     Indication: ASTHMA

REACTIONS (1)
  - BONE MARROW RETICULIN FIBROSIS [None]
